FAERS Safety Report 8051100-9 (Version None)
Quarter: 2012Q1

REPORT INFORMATION
  Report Type: 
  Country: None (occurrence: None)
  Receive Date: 20120117
  Receipt Date: 20120112
  Transmission Date: 20120608
  Serious: Yes (Life-Threatening)
  Sender: FDA-Public Use
  Company Number: PHEH2012US001251

PATIENT
  Sex: Male

DRUGS (6)
  1. LISINOPRIL [Concomitant]
  2. VOLTAREN [Concomitant]
  3. DEXLANSOPRAZOLE [Concomitant]
  4. RECLAST [Suspect]
     Dosage: UNK
     Route: 042
     Dates: start: 20111215
  5. VYTORIN [Concomitant]
  6. BETA GLUCAN [Concomitant]

REACTIONS (14)
  - MYALGIA [None]
  - PAIN [None]
  - CHEST PAIN [None]
  - DYSPNOEA [None]
  - MUSCLE SPASMS [None]
  - CHILLS [None]
  - NAUSEA [None]
  - HEART RATE IRREGULAR [None]
  - RENAL PAIN [None]
  - FEELING ABNORMAL [None]
  - ASTHENIA [None]
  - ARTHRALGIA [None]
  - BONE PAIN [None]
  - EYE PAIN [None]
